FAERS Safety Report 7413668-2 (Version None)
Quarter: 2011Q2

REPORT INFORMATION
  Report Type: 
  Country: None (occurrence: None)
  Receive Date: 20110413
  Receipt Date: 20110315
  Transmission Date: 20111010
  Serious: Yes (Hospitalization, Other)
  Sender: FDA-Public Use
  Company Number: US-BAYER-201034279NA

PATIENT
  Age: 42 Year
  Sex: Female
  Weight: 77 kg

DRUGS (6)
  1. CIPROFLOXACIN [Concomitant]
     Dosage: 500 MG, UNK
     Dates: start: 20060817
  2. CIPROFLOXACIN [Concomitant]
     Dosage: 500 MG, UNK
     Dates: start: 20060601
  3. DIAZEPAM [Concomitant]
     Dosage: 5 MG, UNK
     Dates: start: 20060622
  4. YASMIN [Suspect]
     Indication: ORAL CONTRACEPTION
     Dosage: UNK UNK, QD
  5. YASMIN [Suspect]
     Indication: MENSTRUATION IRREGULAR
  6. YASMIN [Suspect]
     Indication: PREMENSTRUAL SYNDROME

REACTIONS (4)
  - DEEP VEIN THROMBOSIS [None]
  - OEDEMA PERIPHERAL [None]
  - PAIN IN EXTREMITY [None]
  - PULMONARY EMBOLISM [None]
